FAERS Safety Report 9302772 (Version 1)
Quarter: 2013Q2

REPORT INFORMATION
  Report Type: Report from Study
  Country: IN (occurrence: IN)
  Receive Date: 20130522
  Receipt Date: 20130522
  Transmission Date: 20140414
  Serious: Yes (Death)
  Sender: FDA-Public Use
  Company Number: PHHY2012IN029856

PATIENT
  Age: 44 Year
  Sex: Female

DRUGS (2)
  1. GLIVEC [Suspect]
     Indication: CHRONIC MYELOID LEUKAEMIA
     Dosage: 600 MG
  2. GLIVEC [Suspect]
     Dosage: 800 MG

REACTIONS (2)
  - Death [Fatal]
  - Neutropenia [Unknown]
